FAERS Safety Report 9712226 (Version 1)
Quarter: 2013Q4

REPORT INFORMATION
  Report Type: Spontaneous
  Country: US (occurrence: None)
  Receive Date: 20131125
  Receipt Date: 20131125
  Transmission Date: 20140711
  Serious: Yes (Life-Threatening)
  Sender: FDA-Public Use
  Company Number: None

PATIENT
  Age: 72 Year
  Sex: Male
  Weight: 83.92 kg

DRUGS (1)
  1. KLOR-CON [Suspect]
     Indication: MUSCLE SPASMS
     Dosage: 1 OR 2 PILLS
     Route: 048
     Dates: start: 20080606, end: 20131120

REACTIONS (4)
  - Foreign body [None]
  - Product physical issue [None]
  - Product physical issue [None]
  - Choking [None]
